FAERS Safety Report 9238863 (Version 1)
Quarter: 2013Q2

REPORT INFORMATION
  Report Type: Spontaneous
  Country: FR (occurrence: FR)
  Receive Date: 20130418
  Receipt Date: 20130418
  Transmission Date: 20140414
  Serious: Yes (Hospitalization)
  Sender: FDA-Public Use
  Company Number: FR-TEVA-389272ISR

PATIENT
  Age: 52 Year
  Sex: Female
  Weight: 63 kg

DRUGS (5)
  1. COPAXONE [Suspect]
     Indication: MULTIPLE SCLEROSIS
     Route: 058
     Dates: start: 20041122
  2. MANTADIX [Concomitant]
     Dosage: 1 DOSAGE FORMS DAILY;
     Route: 048
  3. LYRICA 75 MG [Concomitant]
     Dosage: 150 MILLIGRAM DAILY;
     Dates: start: 201211
  4. RIVOTRIL [Concomitant]
     Route: 048
     Dates: start: 201111
  5. EFFEXOR [Concomitant]
     Dosage: 1 DOSAGE FORMS DAILY;
     Route: 048

REACTIONS (15)
  - Muscle spasms [Recovered/Resolved]
  - Malaise [Recovered/Resolved]
  - Loss of consciousness [Recovered/Resolved]
  - Diarrhoea [Recovered/Resolved]
  - Urinary incontinence [Recovered/Resolved]
  - Injection site pain [Recovered/Resolved]
  - Fall [Recovered/Resolved]
  - Asthenia [Recovered/Resolved]
  - Tetany [Recovered/Resolved]
  - Aphasia [Recovered/Resolved]
  - Hyperhidrosis [Recovered/Resolved]
  - Feeling hot [Recovered/Resolved]
  - Sense of oppression [Recovered/Resolved]
  - Muscle spasms [Recovered/Resolved]
  - Immediate post-injection reaction [Recovered/Resolved]
